FAERS Safety Report 5150995-6 (Version None)
Quarter: 2006Q4

REPORT INFORMATION
  Report Type: 
  Country: None (occurrence: None)
  Receive Date: 20061115
  Receipt Date: 20061026
  Transmission Date: 20070319
  Serious: Yes (Life-Threatening)
  Sender: FDA-Public Use
  Company Number: US-JNJFOC-20061006584

PATIENT
  Age: 76 Year
  Sex: Male

DRUGS (4)
  1. REOPRO [Suspect]
     Indication: CORONARY ANGIOPLASTY
  2. REOPRO [Suspect]
     Indication: ANTICOAGULANT THERAPY
  3. HEPARIN [Concomitant]
     Indication: ANTICOAGULANT THERAPY
  4. ACETYLSALICYLIC ACID SRT [Concomitant]

REACTIONS (1)
  - HAEMORRHAGIC STROKE [None]
